FAERS Safety Report 24644886 (Version 1)
Quarter: 2024Q4

REPORT INFORMATION
  Report Type: Spontaneous
  Country: US (occurrence: US)
  Receive Date: 20241121
  Receipt Date: 20241121
  Transmission Date: 20250115
  Serious: No
  Sender: PAREXEL
  Company Number: US-Coherus Biosciences, Inc.-2024-COH-US000291

PATIENT

DRUGS (2)
  1. UDENYCA [Suspect]
     Active Substance: PEGFILGRASTIM-CBQV
     Indication: Prophylaxis
     Dosage: 6 MG/0.6ML
     Route: 058
  2. UDENYCA [Suspect]
     Active Substance: PEGFILGRASTIM-CBQV
     Dosage: 6 MG/0.6ML
     Route: 058
     Dates: start: 202402

REACTIONS (4)
  - Product dose omission issue [Unknown]
  - Product quality issue [Unknown]
  - Accidental exposure to product [Unknown]
  - Needle issue [Unknown]

NARRATIVE: CASE EVENT DATE: 20240428
